FAERS Safety Report 5733143-0 (Version None)
Quarter: 2008Q2

REPORT INFORMATION
  Report Type: 
  Country: None (occurrence: None)
  Receive Date: 20080507
  Receipt Date: 20080430
  Transmission Date: 20081010
  Serious: Yes (Disabling)
  Sender: FDA-Public Use
  Company Number: MSTR-NO-0804S-0016

PATIENT
  Age: 76 Year
  Sex: Male
  Weight: 35.8 kg

DRUGS (5)
  1. METASTRON [Suspect]
     Indication: METASTATIC PAIN
     Dosage: SINGLE DOSE, I.V.
     Route: 042
     Dates: start: 20080401, end: 20080401
  2. DICLOFENAC SODIUM [Concomitant]
  3. MORPHINE HCL ELIXIR [Concomitant]
  4. FLURBIPROGEN AXETIL [Concomitant]
  5. LIDOCAINE [Concomitant]

REACTIONS (4)
  - CONDITION AGGRAVATED [None]
  - DRUG INEFFECTIVE [None]
  - GENERAL PHYSICAL HEALTH DETERIORATION [None]
  - PLATELET COUNT DECREASED [None]
